FAERS Safety Report 4905734-8 (Version None)
Quarter: 2006Q1

REPORT INFORMATION
  Report Type: 
  Country: None (occurrence: None)
  Receive Date: 20060208
  Receipt Date: 20050801
  Transmission Date: 20060701
  Serious: Yes (Death, Hospitalization)
  Sender: FDA-Public Use
  Company Number: US-MERCK-0508USA00777

PATIENT
  Age: 44 Year
  Sex: Male
  Weight: 114 kg

DRUGS (5)
  1. VIOXX [Suspect]
     Indication: PAIN
     Route: 048
     Dates: start: 20010110, end: 20040901
  2. TYLENOL W/ CODEINE NO. 3 [Concomitant]
     Route: 065
  3. BEXTRA [Concomitant]
     Route: 065
  4. AMITRIPTYLIN [Concomitant]
     Route: 065
  5. SONATA [Concomitant]
     Route: 065

REACTIONS (9)
  - CARDIAC DISORDER [None]
  - CHONDROMALACIA [None]
  - CONGESTIVE CARDIOMYOPATHY [None]
  - FRACTURE [None]
  - OSTEOARTHRITIS [None]
  - ROTATOR CUFF SYNDROME [None]
  - SYNCOPE [None]
  - SYNOVITIS [None]
  - TENDON DISORDER [None]
